FAERS Safety Report 7427236-X (Version None)
Quarter: 2011Q2

REPORT INFORMATION
  Report Type: 
  Country: None (occurrence: None)
  Receive Date: 20110420
  Receipt Date: 20110413
  Transmission Date: 20111010
  Serious: No
  Sender: FDA-Public Use
  Company Number: US-PFIZER INC-2011053624

PATIENT
  Sex: Female

DRUGS (1)
  1. CALAN [Suspect]
     Dosage: 180 MG, 2X/DAY
     Route: 048

REACTIONS (1)
  - CONSTIPATION [None]
